FAERS Safety Report 19995511 (Version 4)
Quarter: 2022Q1

REPORT INFORMATION
  Report Type: Report from Study
  Country: US (occurrence: US)
  Receive Date: 20211025
  Receipt Date: 20220303
  Transmission Date: 20220423
  Serious: Yes (Hospitalization)
  Sender: FDA-Public Use
  Company Number: US-PFIZER INC-2021755144

PATIENT
  Age: 70 Year
  Sex: Female

DRUGS (4)
  1. IBRANCE [Suspect]
     Active Substance: PALBOCICLIB
     Indication: Breast cancer female
     Dosage: 125 MG, CYCLIC (DAILY 21 DAYS, OFF 7 DAYS OF 28 DAY CYCLE)
     Route: 048
     Dates: start: 20210526
  2. IBRANCE [Suspect]
     Active Substance: PALBOCICLIB
     Dosage: 125 MG, CYCLIC (7 DAYS ON 7 DAYS OFF FOR A 28 DAY CYCLE)
     Route: 048
     Dates: start: 20210816, end: 20220103
  3. IBRANCE [Suspect]
     Active Substance: PALBOCICLIB
     Dosage: 100 MG, CYCLIC(1 TABLET BY MOUTH 7 DAYS ON 7 DAYS OFF)
     Route: 048
     Dates: start: 20220221
  4. LETROZOLE [Concomitant]
     Active Substance: LETROZOLE
     Dosage: UNK, DAILY
     Dates: start: 20210816

REACTIONS (15)
  - Dehydration [Unknown]
  - Kidney infection [Unknown]
  - Off label use [Unknown]
  - Product dose omission issue [Unknown]
  - Product use issue [Unknown]
  - Stomatitis [Unknown]
  - Peripheral swelling [Unknown]
  - Abdominal distension [Unknown]
  - Swelling face [Unknown]
  - Feeling abnormal [Unknown]
  - Back pain [Unknown]
  - Arthralgia [Unknown]
  - Dyspnoea [Unknown]
  - COVID-19 [Unknown]
  - Laboratory test abnormal [Unknown]

NARRATIVE: CASE EVENT DATE: 20210101
